FAERS Safety Report 4304447-3 (Version None)
Quarter: 2004Q1

REPORT INFORMATION
  Report Type: 
  Country: None (occurrence: None)
  Receive Date: 20040224
  Receipt Date: 20040206
  Transmission Date: 20041129
  Serious: Yes (Hospitalization)
  Sender: FDA-Public Use
  Company Number: RENA-10885

PATIENT
  Age: 70 Year
  Sex: Female

DRUGS (14)
  1. RENAGEL [Suspect]
     Indication: HYPERPHOSPHATAEMIA
     Dosage: 3 G QD PO
     Route: 048
     Dates: start: 20030808, end: 20040127
  2. DIGOXIN [Concomitant]
  3. VERAPAMIL HYDROCHLORIDE [Concomitant]
  4. AMEZINIUM METISULFATE [Concomitant]
  5. THEOPHYLLINE [Concomitant]
  6. CARBOCISTEINE [Concomitant]
  7. ERYTHROMYCIN [Concomitant]
  8. TEPRENONE [Concomitant]
  9. NITRAZEPAM [Concomitant]
  10. BROTIZOLAM [Concomitant]
  11. SENNOSIDE [Concomitant]
  12. SODIUM PICOSULFATE [Concomitant]
  13. LACTULOSE [Concomitant]
  14. LACICARBON SUPPOSITORY (SODIUM BICARBONATE AND POTASSIUM BITARTRATE) [Concomitant]

REACTIONS (1)
  - ILEUS [None]
